FAERS Safety Report 14393395 (Version 1)
Quarter: 2018Q1

REPORT INFORMATION
  Report Type: Spontaneous
  Country: US (occurrence: US)
  Receive Date: 20180114
  Receipt Date: 20180114
  Transmission Date: 20180509
  Serious: No
  Sender: FDA-Public Use
  Company Number: None

PATIENT
  Age: 69 Year
  Sex: Female
  Weight: 68.4 kg

DRUGS (8)
  1. VITAMIN B12 [Concomitant]
     Active Substance: CYANOCOBALAMIN
  2. MULTI VITAMIN [Concomitant]
     Active Substance: VITAMINS
  3. LUCENTIS [Suspect]
     Active Substance: RANIBIZUMAB
     Indication: NEOVASCULAR AGE-RELATED MACULAR DEGENERATION
     Dosage: ?          OTHER FREQUENCY:MONTHLY;?
     Route: 047
     Dates: start: 20160604, end: 20161024
  4. METOPROLOL. [Concomitant]
     Active Substance: METOPROLOL
  5. SOMA [Concomitant]
     Active Substance: CARISOPRODOL
  6. VITAMIN D [Concomitant]
     Active Substance: CHOLECALCIFEROL
  7. COQ10 [Concomitant]
     Active Substance: UBIDECARENONE
  8. TRAMADOL ACETAMINOPHEN [Concomitant]

REACTIONS (6)
  - Headache [None]
  - Pain [None]
  - Injection site pain [None]
  - Swelling face [None]
  - Insomnia [None]
  - Influenza like illness [None]

NARRATIVE: CASE EVENT DATE: 20171024
